FAERS Safety Report 23874046 (Version 1)
Quarter: 2024Q2

REPORT INFORMATION
  Report Type: Spontaneous
  Country: US (occurrence: US)
  Receive Date: 20240520
  Receipt Date: 20240520
  Transmission Date: 20240716
  Serious: Yes (Death, Hospitalization)
  Sender: FDA-Public Use
  Company Number: US-BAYER-2024A069144

PATIENT
  Age: 1 Year
  Sex: Female

DRUGS (1)
  1. ADEMPAS [Suspect]
     Active Substance: RIOCIGUAT
     Dosage: UNK
     Dates: start: 20230329, end: 20240501

REACTIONS (3)
  - Bronchopulmonary dysplasia [Fatal]
  - Pulmonary hypertension [Fatal]
  - Off label use [None]
